FAERS Safety Report 9169316 (Version 1)
Quarter: 2013Q1

REPORT INFORMATION
  Report Type: Spontaneous
  Country: JP (occurrence: JP)
  Receive Date: 20130318
  Receipt Date: 20130318
  Transmission Date: 20140127
  Serious: Yes (Hospitalization)
  Sender: FDA-Public Use
  Company Number: JP-ROCHE-683348

PATIENT
  Age: 60 Year
  Sex: Male

DRUGS (1)
  1. ROCEPHIN [Suspect]
     Indication: PYELONEPHRITIS
     Route: 042
     Dates: start: 20100118, end: 20100127

REACTIONS (1)
  - Cholelithiasis [Recovering/Resolving]
